FAERS Safety Report 5064127-6 (Version None)
Quarter: 2006Q3

REPORT INFORMATION
  Report Type: 
  Country: None (occurrence: None)
  Receive Date: 20060728
  Receipt Date: 20060209
  Transmission Date: 20061208
  Serious: No
  Sender: FDA-Public Use
  Company Number: US-GLAXOSMITHKLINE-A0593049A

PATIENT
  Age: 65 Year
  Sex: Female
  Weight: 77.7 kg

DRUGS (1)
  1. ZANTAC [Suspect]
     Indication: DRUG USE FOR UNKNOWN INDICATION
     Route: 042
     Dates: start: 20060202, end: 20060202

REACTIONS (1)
  - INJECTION SITE PRURITUS [None]
